FAERS Safety Report 6678577-5 (Version None)
Quarter: 2010Q2

REPORT INFORMATION
  Report Type: 
  Country: None (occurrence: None)
  Receive Date: 20100409
  Receipt Date: 20100409
  Transmission Date: 20101027
  Serious: Yes (Other)
  Sender: FDA-Public Use
  Company Number: None

PATIENT
  Age: 19 Year
  Sex: Female
  Weight: 41.4 kg

DRUGS (1)
  1. YAZ [Suspect]
     Indication: AMENORRHOEA
     Dosage: 1 TAB DAILY ORAL
     Route: 048
     Dates: start: 20100102

REACTIONS (1)
  - PANCREATITIS ACUTE [None]
